FAERS Safety Report 15843627 (Version 2)
Quarter: 2019Q1

REPORT INFORMATION
  Report Type: Spontaneous
  Country: US (occurrence: US)
  Receive Date: 20190118
  Receipt Date: 20190124
  Transmission Date: 20190417
  Serious: Yes (Other)
  Sender: FDA-Public Use
  Company Number: US-ASTRAZENECA-2018SF65897

PATIENT
  Age: 29630 Day
  Sex: Male
  Weight: 84.8 kg

DRUGS (10)
  1. DEXILANT [Suspect]
     Active Substance: DEXLANSOPRAZOLE
     Route: 065
     Dates: start: 2012, end: 2017
  2. LOSARTAN. [Concomitant]
     Active Substance: LOSARTAN
  3. PRILOSEC [Suspect]
     Active Substance: OMEPRAZOLE MAGNESIUM
     Route: 048
     Dates: start: 2012, end: 2017
  4. METOPROLOL. [Concomitant]
     Active Substance: METOPROLOL
  5. CEPHALEXIN. [Concomitant]
     Active Substance: CEPHALEXIN
  6. NEXIUM [Suspect]
     Active Substance: ESOMEPRAZOLE MAGNESIUM
     Route: 048
     Dates: start: 2012, end: 2017
  7. PANTOPRAZOLE SODIUM. [Suspect]
     Active Substance: PANTOPRAZOLE SODIUM
     Route: 048
     Dates: start: 2012, end: 2017
  8. AMOXICILLIN. [Concomitant]
     Active Substance: AMOXICILLIN
  9. ALLOPURINOL. [Concomitant]
     Active Substance: ALLOPURINOL
  10. PANTOPRAZOLE SODIUM. [Suspect]
     Active Substance: PANTOPRAZOLE SODIUM
     Route: 048
     Dates: start: 20160603

REACTIONS (5)
  - Renal failure [Unknown]
  - Chronic kidney disease [Unknown]
  - Rebound effect [Unknown]
  - End stage renal disease [Unknown]
  - Hyperchlorhydria [Unknown]

NARRATIVE: CASE EVENT DATE: 20160429
